FAERS Safety Report 8379023-6 (Version None)
Quarter: 2012Q2

REPORT INFORMATION
  Report Type: 
  Country: None (occurrence: None)
  Receive Date: 20120522
  Receipt Date: 20120522
  Transmission Date: 20120825
  Serious: Yes (Hospitalization)
  Sender: FDA-Public Use
  Company Number: None

PATIENT
  Age: 66 Year
  Sex: Female
  Weight: 175 kg

DRUGS (1)
  1. CEFEPIME [Suspect]
     Indication: WOUND
     Dosage: 2G Q8HR IV BOLUS
     Route: 040

REACTIONS (2)
  - STATUS EPILEPTICUS [None]
  - MENTAL STATUS CHANGES [None]
